FAERS Safety Report 20086676 (Version 2)
Quarter: 2021Q4

REPORT INFORMATION
  Report Type: Spontaneous
  Country: BR (occurrence: None)
  Receive Date: 20211118
  Receipt Date: 20211119
  Transmission Date: 20220304
  Serious: Yes (Hospitalization, Other)
  Sender: FDA-Public Use
  Company Number: BR-ROCHE-2954716

PATIENT
  Age: 54 Year
  Sex: Female

DRUGS (1)
  1. KADCYLA [Suspect]
     Active Substance: ADO-TRASTUZUMAB EMTANSINE
     Indication: Breast cancer metastatic
     Route: 065
     Dates: start: 20211029

REACTIONS (6)
  - Wound dehiscence [Not Recovered/Not Resolved]
  - Pain [Unknown]
  - Extravasation [Unknown]
  - Administration site extravasation [Unknown]
  - Catheter site erythema [Unknown]
  - Application site fissure [Unknown]

NARRATIVE: CASE EVENT DATE: 20211029
